FAERS Safety Report 8336414-7 (Version None)
Quarter: 2012Q2

REPORT INFORMATION
  Report Type: 
  Country: None (occurrence: None)
  Receive Date: 20120504
  Receipt Date: 20120503
  Transmission Date: 20120825
  Serious: Yes (Death, Other)
  Sender: FDA-Public Use
  Company Number: PHHY2012AU007598

PATIENT
  Age: 62 Year
  Sex: Female

DRUGS (1)
  1. CERTICAN [Suspect]
     Indication: CORONARY ARTERY BYPASS

REACTIONS (6)
  - ARTERIOSPASM CORONARY [None]
  - CARDIAC DEATH [None]
  - CHEST PAIN [None]
  - CORONARY ARTERY THROMBOSIS [None]
  - ELECTROCARDIOGRAM ST SEGMENT ELEVATION [None]
  - MYOCARDIAL INFARCTION [None]
